APPROVED DRUG PRODUCT: PHENYLEPHRINE HYDROCHLORIDE
Active Ingredient: PHENYLEPHRINE HYDROCHLORIDE
Strength: 10MG/ML (10MG/ML)
Dosage Form/Route: SOLUTION;INTRAVENOUS
Application: A210665 | Product #001 | TE Code: AP2
Applicant: FRESENIUS KABI USA LLC
Approved: Jan 29, 2019 | RLD: No | RS: No | Type: RX